FAERS Safety Report 7324600-4 (Version None)
Quarter: 2011Q1

REPORT INFORMATION
  Report Type: 
  Country: None (occurrence: None)
  Receive Date: 20110301
  Receipt Date: 20110222
  Transmission Date: 20110831
  Serious: Yes (Hospitalization, Other)
  Sender: FDA-Public Use
  Company Number: IE-AMGEN-IRLSP2011007954

PATIENT
  Sex: Female

DRUGS (10)
  1. VECTIBIX [Suspect]
     Indication: COLORECTAL CANCER
     Dosage: UNK
     Dates: start: 20100514
  2. MINOCYCLINE HCL [Concomitant]
  3. LEVOMEPROMAZINE MALEATE [Concomitant]
  4. LYRICA [Concomitant]
  5. CALCICHEW [Concomitant]
  6. METHADONE [Concomitant]
  7. EFFEXOR [Concomitant]
  8. ARCOXIA [Concomitant]
  9. MINOCIN [Concomitant]
  10. ZOTON [Concomitant]

REACTIONS (5)
  - BACK PAIN [None]
  - RASH [None]
  - CHAPPED LIPS [None]
  - PARAESTHESIA [None]
  - NAIL DISORDER [None]
